FAERS Safety Report 11150099 (Version 1)
Quarter: 2015Q2

REPORT INFORMATION
  Report Type: Spontaneous
  Country: TR (occurrence: TR)
  Receive Date: 20150529
  Receipt Date: 20150529
  Transmission Date: 20150821
  Serious: Yes (Hospitalization)
  Sender: FDA-Public Use
  Company Number: TR-IMPAX LABORATORIES, INC-2015-IPXL-00603

PATIENT
  Age: 14 Year
  Sex: Male

DRUGS (1)
  1. ALPRAZOLAM ER [Suspect]
     Active Substance: ALPRAZOLAM
     Indication: GENERALISED ANXIETY DISORDER
     Dosage: 1 MG, DAILY
     Route: 065

REACTIONS (2)
  - Self injurious behaviour [Recovered/Resolved]
  - Suicidal ideation [Recovered/Resolved]
